FAERS Safety Report 13819848 (Version 3)
Quarter: 2017Q3

REPORT INFORMATION
  Report Type: Report from Study
  Country: US (occurrence: US)
  Receive Date: 20170801
  Receipt Date: 20170901
  Transmission Date: 20171127
  Serious: Yes (Hospitalization, Other)
  Sender: FDA-Public Use
  Company Number: US-009507513-1705USA008312

PATIENT
  Age: 62 Year
  Sex: Female

DRUGS (13)
  1. PEMBROLIZUMAB. [Suspect]
     Active Substance: PEMBROLIZUMAB
     Dosage: UNK, OVER 30 MINUTES EVERY 3 WEEKS
     Route: 042
     Dates: start: 20170427, end: 20170427
  2. PEMBROLIZUMAB. [Suspect]
     Active Substance: PEMBROLIZUMAB
     Dosage: UNK, OVER 30 MINUTES EVERY 3 WEEKS
     Route: 042
     Dates: start: 20170817, end: 20170817
  3. CARBOPLATIN. [Suspect]
     Active Substance: CARBOPLATIN
     Indication: LUNG NEOPLASM MALIGNANT
     Dosage: UNK
     Dates: start: 20170720, end: 20170720
  4. PEMETREXED DISODIUM [Suspect]
     Active Substance: PEMETREXED DISODIUM
     Indication: LUNG NEOPLASM MALIGNANT
     Dosage: UNK
     Dates: start: 20170720, end: 20170720
  5. CLARITIN [Concomitant]
     Active Substance: LORATADINE
     Dosage: UNK
     Dates: end: 2017
  6. PEMBROLIZUMAB. [Suspect]
     Active Substance: PEMBROLIZUMAB
     Dosage: UNK, OVER 30 MINUTES EVERY 3 WEEKS
     Route: 042
     Dates: start: 20170518, end: 20170518
  7. PEMBROLIZUMAB. [Suspect]
     Active Substance: PEMBROLIZUMAB
     Dosage: UNK, OVER 30 MINUTES EVERY 3 WEEKS
     Route: 042
     Dates: start: 20170720, end: 20170720
  8. DEXAMETHASONE. [Suspect]
     Active Substance: DEXAMETHASONE
     Dosage: DAILY8 MG, DAILY
     Route: 048
     Dates: start: 20170518
  9. PEMETREXED DISODIUM [Suspect]
     Active Substance: PEMETREXED DISODIUM
     Dosage: UNK
     Dates: start: 20170817, end: 20170817
  10. PEMBROLIZUMAB. [Suspect]
     Active Substance: PEMBROLIZUMAB
     Indication: LUNG NEOPLASM MALIGNANT
     Dosage: UNK, OVER 30 MINUTES EVERY 3 WEEKS
     Route: 042
     Dates: start: 20170406, end: 20170406
  11. DEXAMETHASONE. [Suspect]
     Active Substance: DEXAMETHASONE
     Indication: METASTASES TO CENTRAL NERVOUS SYSTEM
     Dosage: 2 MG, DAILY  (TAPERED DOSAGE)
     Route: 048
     Dates: start: 2017, end: 2017
  12. PEMBROLIZUMAB. [Suspect]
     Active Substance: PEMBROLIZUMAB
     Dosage: UNK, OVER 30 MINUTES EVERY 3 WEEKS
     Route: 042
     Dates: start: 20170609, end: 20170609
  13. PEMBROLIZUMAB. [Suspect]
     Active Substance: PEMBROLIZUMAB
     Dosage: UNK, OVER 30 MINUTES EVERY 3 WEEKS
     Route: 042
     Dates: start: 20170629, end: 20170629

REACTIONS (14)
  - Sleep disorder [Unknown]
  - Lethargy [Unknown]
  - Malignant neoplasm progression [Unknown]
  - Asthenia [Unknown]
  - Dizziness [Unknown]
  - Pyrexia [Unknown]
  - Rash [Recovered/Resolved]
  - Neutropenia [Unknown]
  - Pyrexia [Unknown]
  - Pruritus [Recovering/Resolving]
  - Asthenia [Unknown]
  - Fatigue [Unknown]
  - Hypotension [Unknown]
  - Headache [Unknown]

NARRATIVE: CASE EVENT DATE: 2017
